FAERS Safety Report 19821054 (Version 2)
Quarter: 2022Q1

REPORT INFORMATION
  Report Type: Report from Study
  Country: KR (occurrence: None)
  Receive Date: 20210913
  Receipt Date: 20220318
  Transmission Date: 20220424
  Serious: Yes (Hospitalization)
  Sender: FDA-Public Use
  Company Number: KR-EISAI MEDICAL RESEARCH-EC-2021-099304

PATIENT
  Age: 70 Year
  Sex: Female
  Weight: 66.6 kg

DRUGS (16)
  1. LENVIMA [Suspect]
     Active Substance: LENVATINIB
     Indication: Hepatocellular carcinoma
     Route: 048
     Dates: start: 20200228, end: 20200309
  2. LENVIMA [Suspect]
     Active Substance: LENVATINIB
     Route: 048
     Dates: start: 20200310, end: 20200420
  3. ASPIRIN [Concomitant]
     Active Substance: ASPIRIN
     Indication: Hypertension
     Route: 048
     Dates: start: 20141213
  4. PLAVIX [Concomitant]
     Active Substance: CLOPIDOGREL BISULFATE
     Indication: Hypertension
     Route: 048
     Dates: start: 20141212
  5. BISOPROLOL FUMARATE [Concomitant]
     Active Substance: BISOPROLOL FUMARATE
     Indication: Hypertension
     Route: 048
     Dates: start: 20150105
  6. ATACAND [Concomitant]
     Active Substance: CANDESARTAN CILEXETIL
     Indication: Hypertension
     Dates: start: 20160106
  7. OLDECA [Concomitant]
     Indication: Hypertension
     Route: 048
     Dates: start: 20160203
  8. FURIX [Concomitant]
     Indication: Chronic kidney disease
     Route: 048
     Dates: start: 20151127
  9. PENNEL [Concomitant]
     Indication: Hepatic cirrhosis
     Route: 048
     Dates: start: 20151208
  10. HEPARIN SODIUM [Concomitant]
     Active Substance: HEPARIN SODIUM
     Indication: Hepatic cirrhosis
     Route: 048
     Dates: start: 20190429
  11. TENELIGLIPTIN [Concomitant]
     Active Substance: TENELIGLIPTIN
     Indication: Diabetes mellitus
     Route: 048
     Dates: start: 20160823
  12. NOVOMIX 30 FLEX PEN INJ 100IU/ml [Concomitant]
     Indication: Diabetes mellitus
     Route: 058
     Dates: start: 20170227
  13. MEGACE F [Concomitant]
     Indication: Prophylaxis
     Route: 048
     Dates: start: 20200316, end: 20200518
  14. ZOFRAN [Concomitant]
     Active Substance: ONDANSETRON HYDROCHLORIDE
     Indication: Decreased appetite
     Route: 048
     Dates: start: 20200323, end: 20200518
  15. FURIX [Concomitant]
     Indication: Ascites
     Route: 048
     Dates: start: 20200407, end: 20200720
  16. FURIX [Concomitant]
     Route: 048
     Dates: start: 20200421, end: 20200421

REACTIONS (1)
  - Ascites [Recovered/Resolved]

NARRATIVE: CASE EVENT DATE: 20200407
